FAERS Safety Report 5663733-5 (Version None)
Quarter: 2008Q1

REPORT INFORMATION
  Report Type: 
  Country: None (occurrence: None)
  Receive Date: 20080307
  Receipt Date: 20080225
  Transmission Date: 20080703
  Serious: Yes (Hospitalization, Other)
  Sender: FDA-Public Use
  Company Number: 1-15837701/MED-08049

PATIENT
  Age: 79 Year
  Sex: Male

DRUGS (1)
  1. ALLOPURINOL [Suspect]
     Indication: HYPERURICAEMIA
     Dosage: 300 MG DAILY, ORAL
     Route: 048
     Dates: start: 19920101, end: 20021101

REACTIONS (7)
  - ANOREXIA [None]
  - ASTHENIA [None]
  - HAEMODIALYSIS [None]
  - HYPERKALAEMIA [None]
  - METABOLIC ACIDOSIS [None]
  - NEPHRITIS INTERSTITIAL [None]
  - RENAL FAILURE CHRONIC [None]
